FAERS Safety Report 21379371 (Version 2)
Quarter: 2022Q4

REPORT INFORMATION
  Report Type: Report from Study
  Country: US (occurrence: US)
  Receive Date: 20220927
  Receipt Date: 20221005
  Transmission Date: 20230113
  Serious: Yes (Other)
  Sender: FDA-Public Use
  Company Number: US-ABBVIE-20K-163-3370354-00

PATIENT
  Sex: Female

DRUGS (5)
  1. HUMIRA [Suspect]
     Active Substance: ADALIMUMAB
     Indication: Product used for unknown indication
     Route: 058
     Dates: start: 20200116, end: 202012
  2. HUMIRA [Suspect]
     Active Substance: ADALIMUMAB
     Indication: Psoriatic arthropathy
     Route: 058
     Dates: start: 202101
  3. Pfizer/BioNTech [Concomitant]
     Indication: COVID-19 immunisation
     Dosage: 1ST DOSE?1 1 ONCE
     Route: 030
     Dates: start: 20210123, end: 20210123
  4. Pfizer/BioNTech [Concomitant]
     Indication: COVID-19 immunisation
     Dosage: 2ND DOSE?1 1 ONCE
     Route: 030
     Dates: start: 20210213, end: 20210213
  5. Pfizer/BioNTech [Concomitant]
     Indication: COVID-19 immunisation
     Dosage: 3RD/BOOSTER DOSE?1 1 ONCE
     Route: 030
     Dates: start: 20211018, end: 20211018

REACTIONS (23)
  - Toe amputation [Recovered/Resolved]
  - Arthralgia [Not Recovered/Not Resolved]
  - Rash [Unknown]
  - Wound [Unknown]
  - Lymphoedema [Unknown]
  - Injection site rash [Not Recovered/Not Resolved]
  - Arthralgia [Unknown]
  - Joint swelling [Unknown]
  - Pain [Unknown]
  - Drug ineffective [Recovering/Resolving]
  - Rash macular [Unknown]
  - Injection site reaction [Not Recovered/Not Resolved]
  - Gait disturbance [Unknown]
  - Loss of personal independence in daily activities [Not Recovered/Not Resolved]
  - Musculoskeletal discomfort [Unknown]
  - Asthma [Unknown]
  - Swelling [Unknown]
  - Musculoskeletal stiffness [Unknown]
  - Joint stiffness [Unknown]
  - Arthralgia [Unknown]
  - Pain in extremity [Unknown]
  - Medical device implantation [Unknown]
  - Back pain [Unknown]

NARRATIVE: CASE EVENT DATE: 20200101
